FAERS Safety Report 10179344 (Version 4)
Quarter: 2014Q3

REPORT INFORMATION
  Report Type: Spontaneous
  Country: RU (occurrence: RU)
  Receive Date: 20140519
  Receipt Date: 20140904
  Transmission Date: 20150326
  Serious: Yes (Other)
  Sender: FDA-Public Use
  Company Number: RU-ABBVIE-14K-251-1218117-00

PATIENT
  Age: 13 Year
  Sex: Male

DRUGS (4)
  1. DEPAKENE [Suspect]
     Active Substance: VALPROIC ACID
     Indication: EPILEPSY
     Route: 048
     Dates: start: 201401, end: 201403
  2. DEPAKENE [Suspect]
     Active Substance: VALPROIC ACID
     Route: 048
     Dates: start: 201403
  3. DEPAKENE [Suspect]
     Active Substance: VALPROIC ACID
     Route: 048
  4. TOPAMAX [Suspect]
     Active Substance: TOPIRAMATE
     Indication: EPILEPSY
     Route: 048
     Dates: start: 201401, end: 201403

REACTIONS (4)
  - Drug level increased [Recovering/Resolving]
  - Epilepsy [Not Recovered/Not Resolved]
  - Medication error [Unknown]
  - Drug ineffective [Unknown]
